FAERS Safety Report 24441233 (Version 2)
Quarter: 2024Q4

REPORT INFORMATION
  Report Type: Report from Study
  Country: US (occurrence: US)
  Receive Date: 20241016
  Receipt Date: 20241017
  Transmission Date: 20250115
  Serious: No
  Sender: ROCHE
  Company Number: US-ROCHE-3483233

PATIENT
  Age: 60 Year
  Sex: Male

DRUGS (2)
  1. HEMLIBRA [Suspect]
     Active Substance: EMICIZUMAB-KXWH
     Indication: Acquired haemophilia
     Dosage: SUPPLY KIT. INJECT 420MG (2.8ML) SUBCUTANEOUSLY EVERY 28 DAY(S) (SPLIT INTO TWO INJECTIONS OF 1.4ML
     Route: 058
  2. HEMLIBRA [Suspect]
     Active Substance: EMICIZUMAB-KXWH
     Dosage: SYRINGE
     Route: 065

REACTIONS (3)
  - Illness [Unknown]
  - Nasopharyngitis [Unknown]
  - Off label use [Unknown]
